FAERS Safety Report 8909296 (Version 3)
Quarter: 2013Q1

REPORT INFORMATION
  Report Type: Spontaneous
  Country: US (occurrence: None)
  Receive Date: 20121102
  Receipt Date: 20121116
  Transmission Date: 20140127
  Serious: Yes (Other)
  Sender: FDA-Public Use
  Company Number: 2012033770

PATIENT
  Sex: Female

DRUGS (2)
  1. HIZENTRA [Suspect]
     Indication: IMMUNODEFICIENCY COMMON VARIABLE
     Route: 058
     Dates: end: 201205
  2. INSULIN (INSULIN) [Concomitant]

REACTIONS (2)
  - Blood glucose increased [None]
  - Heart rate increased [None]
